FAERS Safety Report 5844643-7 (Version None)
Quarter: 2008Q3

REPORT INFORMATION
  Report Type: 
  Country: None (occurrence: None)
  Receive Date: 20080814
  Receipt Date: 20080806
  Transmission Date: 20090109
  Serious: Yes (Other)
  Sender: FDA-Public Use
  Company Number: DK-JNJFOC-20080801451

PATIENT
  Sex: Female

DRUGS (7)
  1. REMICADE [Suspect]
     Dosage: WEEK 8
     Route: 042
  2. REMICADE [Suspect]
     Dosage: WEEK 8
     Route: 042
  3. REMICADE [Suspect]
     Dosage: WEEK 6
     Route: 042
  4. REMICADE [Suspect]
     Dosage: WEEK 2
     Route: 042
  5. REMICADE [Suspect]
     Indication: JUVENILE ARTHRITIS
     Route: 042
  6. METHOTREXATE [Concomitant]
     Route: 048
  7. METHOTREXATE [Concomitant]
     Route: 048

REACTIONS (6)
  - DYSPNOEA [None]
  - ERYTHEMA [None]
  - HYPERSENSITIVITY [None]
  - INFUSION RELATED REACTION [None]
  - NAUSEA [None]
  - VOMITING [None]
